FAERS Safety Report 16861544 (Version 3)
Quarter: 2019Q4

REPORT INFORMATION
  Report Type: Spontaneous
  Country: US (occurrence: US)
  Receive Date: 20190927
  Receipt Date: 20191129
  Transmission Date: 20200122
  Serious: No
  Sender: FDA-Public Use
  Company Number: US-KARYOPHARM-2019KPT000486

PATIENT

DRUGS (1)
  1. XPOVIO [Suspect]
     Active Substance: SELINEXOR
     Indication: PRODUCT USED FOR UNKNOWN INDICATION
     Dosage: 100 MG, WEEKLY
     Route: 048

REACTIONS (4)
  - Dysphonia [Unknown]
  - Oropharyngeal pain [Unknown]
  - Thrombocytopenia [Unknown]
  - Leukopenia [Unknown]
